FAERS Safety Report 9306799 (Version 2)
Quarter: 2014Q2

REPORT INFORMATION
  Report Type: Spontaneous
  Country: CN (occurrence: None)
  Receive Date: 20130326
  Receipt Date: 20140514
  Transmission Date: 20141212
  Serious: Yes (Other)
  Sender: FDA-Public Use
  Company Number: VAL_02239_2013

PATIENT
  Sex: Male

DRUGS (3)
  1. LOTENSIN [Suspect]
     Indication: HYPERTENSION
     Dosage: (5 MG QD [IN THE MORNING] ORAL)
     Route: 048
     Dates: start: 2011, end: 20130219
  2. NIFEDIPINE (UNKNOWN) [Concomitant]
  3. HYDROCHLOROTHIAZIDE (UNKNOWN) [Concomitant]

REACTIONS (3)
  - Blood pressure systolic increased [None]
  - Drug ineffective [None]
  - Product quality issue [None]
